FAERS Safety Report 9107835 (Version 1)
Quarter: 2013Q1

REPORT INFORMATION
  Report Type: Spontaneous
  Country: GB (occurrence: GB)
  Receive Date: 20130221
  Receipt Date: 20130221
  Transmission Date: 20140127
  Serious: Yes (Other)
  Sender: FDA-Public Use
  Company Number: GB-MERCK-1302GBR005360

PATIENT
  Age: 38 Year
  Sex: Male

DRUGS (9)
  1. PEGINTERFERON ALFA-2B [Suspect]
     Indication: HEPATITIS C
     Dosage: UNK
     Route: 058
     Dates: start: 20120530
  2. RIBAVIRIN [Suspect]
     Indication: HEPATITIS C
     Dosage: UNK
     Route: 048
     Dates: start: 20120530
  3. TELAPREVIR [Suspect]
     Indication: HEPATITIS C
     Dosage: 750 MG, TID
     Route: 048
     Dates: start: 20120530, end: 20120822
  4. METHADONE HCL [Concomitant]
     Indication: DRUG DEPENDENCE
  5. PROPRANOLOL HYDROCHLORIDE [Concomitant]
  6. DIAZEPAM [Concomitant]
  7. VITAMINS (UNSPECIFIED) [Concomitant]
  8. DOTHIEPIN HYDROCHLORIDE [Concomitant]
  9. ZOPICLONE [Concomitant]

REACTIONS (11)
  - Anaemia [Unknown]
  - Depressed mood [Not Recovered/Not Resolved]
  - Confusional state [Not Recovered/Not Resolved]
  - Urinary incontinence [Not Recovered/Not Resolved]
  - Rash [Not Recovered/Not Resolved]
  - Diarrhoea [Not Recovered/Not Resolved]
  - Nausea [Not Recovered/Not Resolved]
  - Dyspnoea [Unknown]
  - Fatigue [Not Recovered/Not Resolved]
  - Contusion [Unknown]
  - Fatigue [Unknown]
